FAERS Safety Report 14513360 (Version 1)
Quarter: 2018Q1

REPORT INFORMATION
  Report Type: Spontaneous
  Country: US (occurrence: US)
  Receive Date: 20180209
  Receipt Date: 20180209
  Transmission Date: 20180509
  Serious: Yes (Other)
  Sender: FDA-Public Use
  Company Number: US-PFIZER INC-2018054760

PATIENT
  Age: 59 Year
  Sex: Female
  Weight: 90.72 kg

DRUGS (8)
  1. CYCLOBENZAPRINE. [Concomitant]
     Active Substance: CYCLOBENZAPRINE
     Indication: FIBROMYALGIA
     Dosage: 10 MG CAPSULES, 2 AT NIGHT
     Route: 048
     Dates: start: 2015
  2. CYCLOBENZAPRINE. [Concomitant]
     Active Substance: CYCLOBENZAPRINE
     Indication: MUSCLE SPASMS
  3. LYRICA [Suspect]
     Active Substance: PREGABALIN
     Indication: FIBROMYALGIA
     Dosage: 150 MG, 3X/DAY
     Route: 048
     Dates: start: 2015
  4. TROKENDI XR [Concomitant]
     Active Substance: TOPIRAMATE
     Indication: ESSENTIAL TREMOR
     Dosage: 200 MG, DAILY
     Route: 048
     Dates: start: 2016
  5. PREDNISONE. [Concomitant]
     Active Substance: PREDNISONE
     Dosage: 5 MG, 1 TO 2 DAILY DEPENDING ON HOWSHE FEELS
     Route: 048
     Dates: start: 201710
  6. LEVOTHYROXINE. [Concomitant]
     Active Substance: LEVOTHYROXINE
     Indication: THYROIDECTOMY
     Dosage: 137 UG, DAILY
     Route: 048
     Dates: start: 2006
  7. NORTRIPTYLINE [Concomitant]
     Active Substance: NORTRIPTYLINE
     Indication: FIBROMYALGIA
     Dosage: 25 MG CAPSULES, TWO AT BED TIME
     Route: 048
     Dates: start: 2015
  8. AMLODIPINE/BENAZEPRIL [Concomitant]
     Active Substance: AMLODIPINE BESYLATE\BENAZEPRIL HYDROCHLORIDE
     Indication: HYPERTENSION
     Dosage: UNK, DAILY
     Route: 048
     Dates: start: 2008

REACTIONS (5)
  - Condition aggravated [Not Recovered/Not Resolved]
  - Rheumatoid arthritis [Recovering/Resolving]
  - Sjogren^s syndrome [Not Recovered/Not Resolved]
  - Off label use [Unknown]
  - Tremor [Not Recovered/Not Resolved]

NARRATIVE: CASE EVENT DATE: 201712
